FAERS Safety Report 11679019 (Version 3)
Quarter: 2016Q2

REPORT INFORMATION
  Report Type: Spontaneous
  Country: US (occurrence: US)
  Receive Date: 20151028
  Receipt Date: 20160614
  Transmission Date: 20160815
  Serious: Yes (Hospitalization, Other)
  Sender: FDA-Public Use
  Company Number: US-GLAXOSMITHKLINE-US2015GSK151735

PATIENT
  Sex: Female

DRUGS (23)
  1. COLACE [Concomitant]
     Active Substance: DOCUSATE SODIUM
  2. TOPAMAX [Concomitant]
     Active Substance: TOPIRAMATE
  3. FOLIC ACID. [Concomitant]
     Active Substance: FOLIC ACID
  4. FLONASE [Concomitant]
     Active Substance: FLUTICASONE PROPIONATE
  5. OMEPRAZOLE. [Concomitant]
     Active Substance: OMEPRAZOLE
  6. TYLENOL [Concomitant]
     Active Substance: ACETAMINOPHEN
  7. ADVAIR DISKUS [Suspect]
     Active Substance: FLUTICASONE PROPIONATE\SALMETEROL XINAFOATE
     Indication: ASTHMA
     Dosage: 250/50 ?G, UNK
     Dates: start: 1996
  8. SYNTHROID [Concomitant]
     Active Substance: LEVOTHYROXINE SODIUM
  9. ADVAIR DISKUS [Suspect]
     Active Substance: FLUTICASONE PROPIONATE\SALMETEROL XINAFOATE
     Dosage: 500/50 ?G, UNK
     Dates: start: 1997
  10. VENTOLIN HFA [Suspect]
     Active Substance: ALBUTEROL SULFATE
     Indication: PRODUCT USED FOR UNKNOWN INDICATION
     Dosage: UNK
  11. FLOVENT [Concomitant]
     Active Substance: FLUTICASONE PROPIONATE
     Indication: PRODUCT USED FOR UNKNOWN INDICATION
     Dosage: UNK
  12. PREDNISONE. [Concomitant]
     Active Substance: PREDNISONE
  13. MYRBETRIQ [Concomitant]
     Active Substance: MIRABEGRON
  14. ALIGN [Concomitant]
     Active Substance: BIFIDOBACTERIUM LONGUM SUBSP. INFANTIS
  15. IMMUNE GLOBULIN, INTRAVENOUS [Suspect]
     Active Substance: HUMAN IMMUNOGLOBULIN G
     Indication: PRODUCT USED FOR UNKNOWN INDICATION
     Dosage: UNK
  16. XOPENEX [Concomitant]
     Active Substance: LEVALBUTEROL HYDROCHLORIDE
  17. PLAQUENIL [Concomitant]
     Active Substance: HYDROXYCHLOROQUINE SULFATE
  18. OXYBUTYNIN [Concomitant]
     Active Substance: OXYBUTYNIN
  19. MAGNESIUM [Concomitant]
     Active Substance: MAGNESIUM
  20. PROVENTIL [Suspect]
     Active Substance: ALBUTEROL
     Indication: PRODUCT USED FOR UNKNOWN INDICATION
     Dosage: UNK
  21. NEURONTIN [Concomitant]
     Active Substance: GABAPENTIN
  22. SINGULAIR [Concomitant]
     Active Substance: MONTELUKAST SODIUM
  23. COUMADIN [Concomitant]
     Active Substance: WARFARIN SODIUM

REACTIONS (9)
  - Chest pain [Unknown]
  - Nodule [Not Recovered/Not Resolved]
  - Drug ineffective [Unknown]
  - Autoimmune retinopathy [Unknown]
  - Rash [Unknown]
  - Seizure [Unknown]
  - Systemic lupus erythematosus [Unknown]
  - Optic neuropathy [Unknown]
  - Tremor [Unknown]

NARRATIVE: CASE EVENT DATE: 1999
